FAERS Safety Report 8616308-X (Version None)
Quarter: 2012Q3

REPORT INFORMATION
  Report Type: 
  Country: None (occurrence: None)
  Receive Date: 20120823
  Receipt Date: 20120820
  Transmission Date: 20120928
  Serious: Yes (Other)
  Sender: FDA-Public Use
  Company Number: US-PFIZER INC-2012203812

PATIENT
  Sex: Female

DRUGS (1)
  1. FIBERCON [Suspect]

REACTIONS (2)
  - TABLET PHYSICAL ISSUE [None]
  - CHOKING [None]
